FAERS Safety Report 6190099-7 (Version None)
Quarter: 2009Q2

REPORT INFORMATION
  Report Type: 
  Country: None (occurrence: None)
  Receive Date: 20090514
  Receipt Date: 20090506
  Transmission Date: 20091009
  Serious: Yes (Hospitalization)
  Sender: FDA-Public Use
  Company Number: FR-AVENTIS-200911760FR

PATIENT
  Age: 80 Year
  Sex: Male

DRUGS (7)
  1. OFLOCET                            /00731801/ [Suspect]
     Route: 048
     Dates: start: 20090211, end: 20090305
  2. OFLOCET                            /00731801/ [Suspect]
     Route: 048
     Dates: start: 20090318, end: 20090319
  3. RIFADIN [Suspect]
     Route: 042
     Dates: start: 20090318, end: 20090318
  4. DALACINE [Suspect]
     Route: 042
     Dates: start: 20090306, end: 20090318
  5. ORBENINE [Concomitant]
     Dates: start: 20090211, end: 20090305
  6. ORBENINE [Concomitant]
     Route: 042
     Dates: start: 20090306, end: 20090318
  7. ORBENINE [Concomitant]
     Route: 048
     Dates: start: 20090331

REACTIONS (1)
  - ACUTE GENERALISED EXANTHEMATOUS PUSTULOSIS [None]
